FAERS Safety Report 8415328-8 (Version None)
Quarter: 2012Q2

REPORT INFORMATION
  Report Type: 
  Country: None (occurrence: None)
  Receive Date: 20120606
  Receipt Date: 20120530
  Transmission Date: 20120825
  Serious: Yes (Hospitalization)
  Sender: FDA-Public Use
  Company Number: PHEH2012US010991

PATIENT
  Sex: Male
  Weight: 159 kg

DRUGS (2)
  1. TEGRETOL [Suspect]
     Dates: end: 20110101
  2. AMLODIPINE BESYLATE [Concomitant]
     Indication: BLOOD PRESSURE INCREASED
     Dosage: 10 MG, DAILY

REACTIONS (2)
  - MALAISE [None]
  - FEELING ABNORMAL [None]
